FAERS Safety Report 17718208 (Version 1)
Quarter: 2020Q2

REPORT INFORMATION
  Report Type: Spontaneous
  Country: US (occurrence: US)
  Receive Date: 20200428
  Receipt Date: 20200428
  Transmission Date: 20200714
  Serious: No
  Sender: FDA-Public Use
  Company Number: None

PATIENT
  Age: 70 Year
  Sex: Male
  Weight: 127 kg

DRUGS (1)
  1. VANCOMYCIN (VANCOMYCIN 1GM/VIL INJ) [Suspect]
     Active Substance: VANCOMYCIN HYDROCHLORIDE
     Indication: PERIRECTAL ABSCESS
     Route: 042
     Dates: start: 20191102, end: 20191104

REACTIONS (2)
  - Drug level above therapeutic [None]
  - Drug trough level [None]

NARRATIVE: CASE EVENT DATE: 20191104
